FAERS Safety Report 13300920 (Version 2)
Quarter: 2017Q1

REPORT INFORMATION
  Report Type: Report from Study
  Country: US (occurrence: US)
  Receive Date: 20170307
  Receipt Date: 20170317
  Transmission Date: 20170428
  Serious: Yes (Hospitalization)
  Sender: FDA-Public Use
  Company Number: PHHO2017US004178

PATIENT
  Age: 79 Year
  Sex: Male

DRUGS (8)
  1. BLINDED PLACEBO [Suspect]
     Active Substance: INVESTIGATIONAL PRODUCT
     Indication: IMMUNISATION
     Dosage: .5 ML
     Route: 030
     Dates: start: 20160823, end: 20160823
  2. BLINDED FCC H5N1 TURKEY [Suspect]
     Active Substance: INFLUENZA VIRUS VACCINE
     Indication: IMMUNISATION
     Dosage: .5 ML
     Route: 030
     Dates: start: 20160823, end: 20160823
  3. BLINDED NO VACCINATION RECEIVED [Suspect]
     Active Substance: UNSPECIFIED INGREDIENT
     Indication: IMMUNISATION
     Dosage: .5 ML
     Route: 030
     Dates: start: 20160823, end: 20160823
  4. BLINDED PLACEBO [Suspect]
     Active Substance: INVESTIGATIONAL PRODUCT
     Dosage: .5 ML
     Route: 030
     Dates: start: 20160920, end: 20160920
  5. BLINDED FCC H5N1 TURKEY [Suspect]
     Active Substance: INFLUENZA VIRUS VACCINE
     Dosage: .5 ML
     Route: 030
     Dates: start: 20160920, end: 20160920
  6. FUROSEMIDE. [Concomitant]
     Active Substance: FUROSEMIDE
     Indication: CARDIAC FAILURE CONGESTIVE
     Dosage: 40 MG, BID
     Route: 065
     Dates: start: 20160930
  7. METOLAZONE. [Suspect]
     Active Substance: METOLAZONE
     Indication: CARDIAC FAILURE CONGESTIVE
     Dosage: 5 MG, BID
     Route: 065
     Dates: start: 20170123, end: 20170124
  8. BLINDED NO VACCINATION RECEIVED [Suspect]
     Active Substance: UNSPECIFIED INGREDIENT
     Dosage: .5 ML
     Route: 030
     Dates: start: 20160920, end: 20160920

REACTIONS (1)
  - Dehydration [Recovered/Resolved]

NARRATIVE: CASE EVENT DATE: 20170125
